FAERS Safety Report 5372248-3 (Version None)
Quarter: 2007Q2

REPORT INFORMATION
  Report Type: 
  Country: None (occurrence: None)
  Receive Date: 20070618
  Receipt Date: 20070507
  Transmission Date: 20071010
  Serious: Yes (Other)
  Sender: FDA-Public Use
  Company Number: 07-068

PATIENT
  Age: 35 Year
  Sex: Male
  Weight: 61.2356 kg

DRUGS (1)
  1. ALEVE [Suspect]
     Indication: PROCEDURAL PAIN
     Dosage: 440 MG, DAILY, ORAL
     Route: 048
     Dates: start: 20070401

REACTIONS (1)
  - BLOOD URINE [None]
